FAERS Safety Report 12757406 (Version 2)
Quarter: 2016Q4

REPORT INFORMATION
  Report Type: Spontaneous
  Country: US (occurrence: US)
  Receive Date: 20160919
  Receipt Date: 20161115
  Transmission Date: 20170207
  Serious: No
  Sender: FDA-Public Use
  Company Number: US-ASTRAZENECA-2016SE96509

PATIENT
  Age: 24231 Day
  Sex: Male
  Weight: 122.5 kg

DRUGS (5)
  1. WARFARIN [Concomitant]
     Active Substance: WARFARIN
     Route: 048
     Dates: start: 201305
  2. LINISOPRIL [Suspect]
     Active Substance: LISINOPRIL
     Indication: HYPERTENSION
     Route: 048
     Dates: start: 201301
  3. PULMICORT FLEXHALER [Suspect]
     Active Substance: BUDESONIDE
     Indication: PRODUCTIVE COUGH
     Dosage: 90 MCG, ONE INHALATION THREE TO FOUR TIMES A DAY
     Route: 055
     Dates: start: 20160825
  4. PULMICORT FLEXHALER [Suspect]
     Active Substance: BUDESONIDE
     Indication: WHEEZING
     Dosage: 90 MCG, ONE INHALATION THREE TO FOUR TIMES A DAY
     Route: 055
     Dates: start: 20160825
  5. UNKOWN [Concomitant]
     Indication: CARDIAC DISORDER

REACTIONS (4)
  - Device malfunction [Unknown]
  - Sputum discoloured [Not Recovered/Not Resolved]
  - Wheezing [Not Recovered/Not Resolved]
  - Product quality issue [Unknown]

NARRATIVE: CASE EVENT DATE: 20160827
